FAERS Safety Report 17929272 (Version 1)
Quarter: 2020Q2

REPORT INFORMATION
  Report Type: Spontaneous
  Country: US (occurrence: US)
  Receive Date: 20200623
  Receipt Date: 20200623
  Transmission Date: 20200714
  Serious: No
  Sender: FDA-Public Use
  Company Number: US-BEH-2020118700

PATIENT
  Age: 35 Year
  Sex: Male

DRUGS (1)
  1. HAEGARDA [Suspect]
     Active Substance: HUMAN C1-ESTERASE INHIBITOR
     Dosage: 6000 INTERNATIONAL UNIT, FREQUENCY: OTHER
     Route: 058
     Dates: start: 2020

REACTIONS (3)
  - Circumstance or information capable of leading to medication error [Unknown]
  - No adverse event [Unknown]
  - Memory impairment [Unknown]

NARRATIVE: CASE EVENT DATE: 20200615
